FAERS Safety Report 7050684-7 (Version None)
Quarter: 2010Q4

REPORT INFORMATION
  Report Type: 
  Country: None (occurrence: None)
  Receive Date: 20101018
  Receipt Date: 20101012
  Transmission Date: 20110411
  Serious: No
  Sender: FDA-Public Use
  Company Number: US-ROXANE LABORATORIES, INC.-2010-RO-00990RO

PATIENT
  Age: 42 Year
  Sex: Female

DRUGS (5)
  1. LITHIUM CARBONATE [Suspect]
     Indication: BIPOLAR DISORDER
     Dates: start: 20100520
  2. LAMICTAL [Concomitant]
     Indication: BIPOLAR I DISORDER
     Dosage: 300 MG
  3. GEODON [Concomitant]
  4. VALIUM [Concomitant]
  5. PRISTIQ [Concomitant]

REACTIONS (1)
  - ALOPECIA [None]
